FAERS Safety Report 21091250 (Version 2)
Quarter: 2022Q3

REPORT INFORMATION
  Report Type: Report from Study
  Country: GR (occurrence: GR)
  Receive Date: 20220716
  Receipt Date: 20220721
  Transmission Date: 20221027
  Serious: Yes (Hospitalization, Other)
  Sender: FDA-Public Use
  Company Number: GR-TAKEDA-2022TUS044703

PATIENT
  Sex: Male

DRUGS (2)
  1. HUMAN IMMUNOGLOBULIN G\HYALURONIDASE RECOMBINANT HUMAN [Suspect]
     Active Substance: HUMAN IMMUNOGLOBULIN G\HYALURONIDASE RECOMBINANT HUMAN
     Indication: Immunodeficiency
     Dosage: 30 MILLILITER
     Route: 065
     Dates: start: 20190712
  2. HUMAN IMMUNOGLOBULIN G\HYALURONIDASE RECOMBINANT HUMAN [Suspect]
     Active Substance: HUMAN IMMUNOGLOBULIN G\HYALURONIDASE RECOMBINANT HUMAN
     Dosage: 30 MILLILITER
     Route: 065
     Dates: start: 20190712

REACTIONS (3)
  - Cholecystitis [Not Recovered/Not Resolved]
  - Gastrointestinal pain [Not Recovered/Not Resolved]
  - Abdominal pain [Not Recovered/Not Resolved]

NARRATIVE: CASE EVENT DATE: 20220708
